FAERS Safety Report 5755937-8 (Version None)
Quarter: 2008Q2

REPORT INFORMATION
  Report Type: 
  Country: None (occurrence: None)
  Receive Date: 20080602
  Receipt Date: 20080501
  Transmission Date: 20081010
  Serious: No
  Sender: FDA-Public Use
  Company Number: US-BAYER-200712916BCC

PATIENT
  Age: 28 Year
  Sex: Male
  Weight: 79 kg

DRUGS (2)
  1. ALEVE [Suspect]
     Indication: TOOTHACHE
     Dosage: TOTAL DAILY DOSE: 1760 MG  UNIT DOSE: 220 MG
     Route: 048
     Dates: start: 20070901
  2. ASPIRIN [Suspect]
     Indication: DRUG USE FOR UNKNOWN INDICATION
     Route: 048
     Dates: start: 20070904

REACTIONS (4)
  - DYSPNOEA [None]
  - FATIGUE [None]
  - NAUSEA [None]
  - TOOTHACHE [None]
